FAERS Safety Report 6678919-0 (Version None)
Quarter: 2010Q2

REPORT INFORMATION
  Report Type: 
  Country: None (occurrence: None)
  Receive Date: 20100409
  Receipt Date: 20100329
  Transmission Date: 20101027
  Serious: Yes (Other)
  Sender: FDA-Public Use
  Company Number: 009439

PATIENT
  Age: 67 Year
  Sex: Female
  Weight: 58 kg

DRUGS (10)
  1. PREDNISOLONE [Suspect]
     Indication: RHEUMATOID ARTHRITIS
     Dosage: (3 MG QD ORAL)
     Route: 048
     Dates: start: 19960101
  2. ENBREL [Suspect]
     Indication: RHEUMATOID ARTHRITIS
     Dosage: (25 MG 2X/WEEK SUBCUTANEOUS)
     Route: 058
     Dates: start: 20040712, end: 20041112
  3. REMICADE [Suspect]
     Indication: RHEUMATOID ARTHRITIS
     Dosage: (3 MG/KG 1X/WEEK INTRAVENOUS (NOT SPECIFIED))
     Route: 042
     Dates: start: 20020513, end: 20040305
  4. ALENDRONATE SODIUM [Concomitant]
  5. AMITRIPTYLINE [Concomitant]
  6. CO-DYRAMOL [Concomitant]
  7. FOSAMAX [Concomitant]
  8. LISINOPRIL [Concomitant]
  9. PLAQUENIL /00072603/ [Concomitant]
  10. ZOPICLONE [Concomitant]

REACTIONS (2)
  - BASAL CELL CARCINOMA [None]
  - ECZEMA [None]
